FAERS Safety Report 16714614 (Version 1)
Quarter: 2019Q3

REPORT INFORMATION
  Report Type: Spontaneous
  Country: DE (occurrence: DE)
  Receive Date: 20190819
  Receipt Date: 20190819
  Transmission Date: 20191004
  Serious: Yes (Life-Threatening)
  Sender: FDA-Public Use
  Company Number: DE-UNICHEM PHARMACEUTICALS (USA) INC-UCM201908-000305

PATIENT
  Age: 58 Year
  Sex: Female

DRUGS (2)
  1. CLONIDINE HCL [Suspect]
     Active Substance: CLONIDINE HYDROCHLORIDE
     Indication: NEURALGIA
     Route: 037
  2. MORPHINE [Suspect]
     Active Substance: MORPHINE
     Indication: NEURALGIA
     Route: 037

REACTIONS (3)
  - Hypertensive crisis [Unknown]
  - Myoclonus [Recovered/Resolved]
  - Drug withdrawal syndrome [Unknown]
